FAERS Safety Report 8598712-1 (Version None)
Quarter: 2012Q3

REPORT INFORMATION
  Report Type: 
  Country: None (occurrence: None)
  Receive Date: 20120816
  Receipt Date: 20120814
  Transmission Date: 20120928
  Serious: Yes (Hospitalization)
  Sender: FDA-Public Use
  Company Number: JP-TEVA-351353USA

PATIENT
  Sex: Male

DRUGS (10)
  1. ALLOPURINOL [Concomitant]
     Indication: HYPERURICAEMIA
  2. PREDNISOLONE [Concomitant]
     Indication: RASH
  3. TREANDA [Suspect]
     Indication: B-CELL LYMPHOMA
     Route: 042
     Dates: start: 20120511, end: 20120512
  4. TAMSULOSIN HYDROCHLORIDE [Concomitant]
     Indication: BENIGN PROSTATIC HYPERPLASIA
  5. MECOBALAMIN [Concomitant]
     Indication: NEUROPATHY PERIPHERAL
  6. RITUXIMAB [Concomitant]
     Indication: B-CELL LYMPHOMA
     Dates: start: 20110511
  7. SULFAMETHOXAZOLE AND TRIMETHOPRIM [Concomitant]
     Indication: ANTIFUNGAL PROPHYLAXIS
  8. AMIKACIN SULFATE [Concomitant]
     Indication: FEBRILE NEUTROPENIA
  9. PREDNISOLONE SODIUM SUCCINATE INJ [Concomitant]
     Indication: B-CELL LYMPHOMA
     Dates: start: 20120609
  10. BETAMETHASONE PLUS D-CHLORPHENIRAMINE MALEATE [Concomitant]
     Indication: RASH

REACTIONS (4)
  - PNEUMONIA CYTOMEGALOVIRAL [None]
  - HEPATOSPLENOMEGALY [None]
  - HYPONATRAEMIA [None]
  - FULL BLOOD COUNT DECREASED [None]
